FAERS Safety Report 10037687 (Version 1)
Quarter: 2014Q1

REPORT INFORMATION
  Report Type: Spontaneous
  Country: US (occurrence: US)
  Receive Date: 20140326
  Receipt Date: 20140326
  Transmission Date: 20141002
  Serious: No
  Sender: FDA-Public Use
  Company Number: US-PFIZER INC-2014084028

PATIENT
  Age: 64 Year
  Sex: Female

DRUGS (9)
  1. LYRICA [Suspect]
     Dosage: 225 MG, 2X/DAY
     Route: 048
     Dates: start: 2006
  2. SYNTHROID [Concomitant]
     Dosage: 75 UG, 1X/DAY
  3. LISINOPRIL [Concomitant]
     Dosage: 20 MG, 1X/DAY
  4. VIT D [Concomitant]
     Dosage: 50 M UNITS 2 X MONTH
  5. CALCIUM W/MAGNESIUM [Concomitant]
     Dosage: UNK
  6. TRAMADOL [Concomitant]
     Dosage: 50 MG, 3X/DAY
  7. AMITRIPTYLINE [Concomitant]
     Dosage: 10 MG, 1X/DAY
  8. CYMBALTA [Concomitant]
     Dosage: 60 MG, 1X/DAY
  9. OMEPRAZOLE [Concomitant]
     Dosage: 20 MG, 2X/DAY

REACTIONS (1)
  - Pain [Unknown]
